FAERS Safety Report 9200143 (Version 1)
Quarter: 2013Q1

REPORT INFORMATION
  Report Type: Spontaneous
  Country: BE (occurrence: BE)
  Receive Date: 20130329
  Receipt Date: 20130329
  Transmission Date: 20140127
  Serious: Yes (Other)
  Sender: FDA-Public Use
  Company Number: BE-ROCHE-1208156

PATIENT
  Age: 40 Year
  Sex: Female
  Weight: 57 kg

DRUGS (15)
  1. HERCEPTIN [Suspect]
     Indication: BREAST CANCER
     Route: 065
     Dates: start: 20100512, end: 20100715
  2. HERCEPTIN [Suspect]
     Route: 065
     Dates: start: 20100831, end: 201107
  3. HERCEPTIN [Suspect]
     Route: 065
     Dates: start: 20120419, end: 20120920
  4. HERCEPTIN [Suspect]
     Route: 065
     Dates: start: 20121023, end: 20121228
  5. HERCEPTIN [Suspect]
     Route: 065
     Dates: start: 20130117, end: 20130321
  6. XELODA [Suspect]
     Indication: BREAST CANCER
     Route: 065
     Dates: end: 20120403
  7. TAXOTERE [Concomitant]
     Indication: BREAST CANCER
     Route: 065
     Dates: start: 20100512, end: 20100715
  8. TAXOTERE [Concomitant]
     Route: 065
     Dates: start: 20121023, end: 20121204
  9. TYVERB [Concomitant]
     Indication: BREAST CANCER
     Route: 065
     Dates: start: 201112, end: 20120403
  10. TYVERB [Concomitant]
     Route: 065
     Dates: start: 20120510, end: 20121204
  11. TYVERB [Concomitant]
     Route: 065
     Dates: start: 20130117, end: 20130321
  12. ENDOXAN [Concomitant]
     Route: 065
     Dates: start: 20100219, end: 20100422
  13. DOXORUBICIN [Concomitant]
     Route: 065
     Dates: start: 20100219, end: 20100422
  14. DOXORUBICIN [Concomitant]
     Route: 065
  15. NAVELBINE [Concomitant]
     Route: 065
     Dates: start: 20120419, end: 20120920

REACTIONS (1)
  - Disease progression [Not Recovered/Not Resolved]
